FAERS Safety Report 6702864-5 (Version None)
Quarter: 2010Q2

REPORT INFORMATION
  Report Type: 
  Country: None (occurrence: None)
  Receive Date: 20100429
  Receipt Date: 20100429
  Transmission Date: 20101027
  Serious: Yes (Life-Threatening, Hospitalization)
  Sender: FDA-Public Use
  Company Number: None

PATIENT
  Age: 83 Year
  Sex: Male

DRUGS (2)
  1. HALOPERIDOL [Suspect]
     Indication: AGITATION
     Dosage: 2 MG TID PO
     Route: 048
     Dates: start: 20090331, end: 20090403
  2. OLANZAPINE [Suspect]
     Indication: DEMENTIA
     Dosage: 10 MG AT BEDTIME PO
     Route: 048
     Dates: start: 19990715, end: 20090403

REACTIONS (2)
  - DEMENTIA [None]
  - NEUROLEPTIC MALIGNANT SYNDROME [None]
